FAERS Safety Report 14481832 (Version 1)
Quarter: 2018Q1

REPORT INFORMATION
  Report Type: Spontaneous
  Country: IE (occurrence: IE)
  Receive Date: 20180202
  Receipt Date: 20180202
  Transmission Date: 20180509
  Serious: Yes (Hospitalization)
  Sender: FDA-Public Use
  Company Number: IE-PFIZER INC-2017555532

PATIENT
  Age: 77 Year
  Sex: Female

DRUGS (2)
  1. GENOTROPIN GOQUICK [Suspect]
     Active Substance: SOMATROPIN
  2. GENOTROPIN [Suspect]
     Active Substance: SOMATROPIN
     Dosage: 0.3 MG, UNK

REACTIONS (4)
  - Atrial fibrillation [Unknown]
  - Device issue [Unknown]
  - Influenza [Unknown]
  - Drug dose omission [Unknown]
